FAERS Safety Report 8506731-6 (Version None)
Quarter: 2012Q3

REPORT INFORMATION
  Report Type: 
  Country: None (occurrence: None)
  Receive Date: 20120712
  Receipt Date: 20120703
  Transmission Date: 20120928
  Serious: No
  Sender: FDA-Public Use
  Company Number: US-ASTRAZENECA-2012SE45634

PATIENT
  Age: 62 Year
  Sex: Female

DRUGS (2)
  1. TOPROL-XL [Concomitant]
  2. CRESTOR [Suspect]
     Route: 048

REACTIONS (6)
  - BACK PAIN [None]
  - WEIGHT INCREASED [None]
  - ADVERSE EVENT [None]
  - URINE COLOUR ABNORMAL [None]
  - FATIGUE [None]
  - OEDEMA PERIPHERAL [None]
